FAERS Safety Report 18542523 (Version 1)
Quarter: 2020Q4

REPORT INFORMATION
  Report Type: Other
  Country: CA (occurrence: CA)
  Receive Date: 20201125
  Receipt Date: 20201125
  Transmission Date: 20210114
  Serious: Yes (Hospitalization)
  Sender: FDA-Public Use
  Company Number: CA-CELLTRION INC.-2020CA032046

PATIENT

DRUGS (15)
  1. ATORVASTATIN CALCIUM. [Concomitant]
     Active Substance: ATORVASTATIN CALCIUM
  2. HYDROXYCHLOROQUINE SULFATE. [Concomitant]
     Active Substance: HYDROXYCHLOROQUINE SULFATE
  3. TINZAPARIN [Concomitant]
     Active Substance: TINZAPARIN
  4. BENADRYL [Concomitant]
     Active Substance: DIPHENHYDRAMINE HYDROCHLORIDE
  5. AMLODIPINE [Concomitant]
     Active Substance: AMLODIPINE BESYLATE
  6. CLOPIDOGREL BISULFATE. [Concomitant]
     Active Substance: CLOPIDOGREL BISULFATE
  7. RITUXIMAB (UNKNOWN) [Suspect]
     Active Substance: RITUXIMAB
     Indication: ANTIPHOSPHOLIPID SYNDROME
     Dosage: 900 MILLIGRAM, 1 EVERY 1 WEEKS
     Route: 042
  8. RAMIPRIL. [Concomitant]
     Active Substance: RAMIPRIL
  9. RITUXIMAB (UNKNOWN) [Suspect]
     Active Substance: RITUXIMAB
     Indication: IMMUNE THROMBOCYTOPENIA
     Dosage: 1000 MILLIGRAM, 1 EVERY 3 MONTHS
     Route: 042
  10. METHYLPREDNISOLONE SODIUM SUCCINATE. [Concomitant]
     Active Substance: METHYLPREDNISOLONE SODIUM SUCCINATE
  11. CARBAMAZEPINE. [Concomitant]
     Active Substance: CARBAMAZEPINE
  12. TYLENOL [Concomitant]
     Active Substance: ACETAMINOPHEN
  13. RITUXIMAB (UNKNOWN) [Suspect]
     Active Substance: RITUXIMAB
     Dosage: 1000 MILLIGRAM, 1 EVERY 2 WEEKS
     Route: 042
  14. CLOBAZAM. [Concomitant]
     Active Substance: CLOBAZAM
  15. DALTEPARIN SODIUM [Concomitant]
     Active Substance: DALTEPARIN SODIUM

REACTIONS (4)
  - Acute kidney injury [Unknown]
  - Off label use [Unknown]
  - Confusional state [Unknown]
  - Pulmonary haemorrhage [Unknown]
